FAERS Safety Report 6357224-6 (Version None)
Quarter: 2009Q3

REPORT INFORMATION
  Report Type: 
  Country: None (occurrence: None)
  Receive Date: 20090911
  Receipt Date: 20090904
  Transmission Date: 20100115
  Serious: Yes (Hospitalization)
  Sender: FDA-Public Use
  Company Number: 1000008688

PATIENT

DRUGS (1)
  1. SAVELLA [Suspect]

REACTIONS (1)
  - PHARYNGEAL OEDEMA [None]
